FAERS Safety Report 6318597-3 (Version None)
Quarter: 2009Q3

REPORT INFORMATION
  Report Type: 
  Country: None (occurrence: None)
  Receive Date: 20090821
  Receipt Date: 20090810
  Transmission Date: 20100115
  Serious: Yes (Hospitalization)
  Sender: FDA-Public Use
  Company Number: US-ELI_LILLY_AND_COMPANY-US200907002428

PATIENT
  Sex: Female
  Weight: 53.515 kg

DRUGS (6)
  1. CYMBALTA [Suspect]
     Dosage: 30 MG, DAILY (1/D)
     Dates: start: 20090609, end: 20090611
  2. ASPIRIN [Concomitant]
     Dosage: 323 MG, 2/D
  3. ASMANEX TWISTHALER [Concomitant]
     Dosage: 1 D/F, UNK
  4. FLONASE [Concomitant]
     Indication: RHINITIS
     Dosage: 1 D/F, DAILY (1/D)
     Route: 045
  5. ACTONEL [Concomitant]
     Indication: OSTEOPENIA
     Dosage: 35 MG, WEEKLY (1/W)
     Dates: start: 20071121
  6. PROTONIX [Concomitant]
     Indication: GASTROOESOPHAGEAL REFLUX DISEASE
     Dosage: 40 MG, DAILY (1/D)
     Dates: start: 20071121

REACTIONS (3)
  - ANGIOMYOLIPOMA [None]
  - HAEMANGIOMA OF LIVER [None]
  - PANCREATITIS [None]
